FAERS Safety Report 10226761 (Version 2)
Quarter: 2014Q2

REPORT INFORMATION
  Report Type: Spontaneous
  Country: CA (occurrence: CA)
  Receive Date: 20140610
  Receipt Date: 20140610
  Transmission Date: 20141212
  Serious: Yes (Hospitalization, Other)
  Sender: FDA-Public Use
  Company Number: CA-AMGEN-CANSP2013031472

PATIENT
  Age: 69 Year
  Sex: Female

DRUGS (11)
  1. ENBREL [Suspect]
     Indication: PSORIASIS
     Dosage: 50 MG, UNK
     Route: 065
     Dates: start: 20110314
  2. OMEPRAZOLE [Concomitant]
     Dosage: 20 MG, QD
  3. AMLODIPINE [Concomitant]
     Dosage: 5 MG, QD
  4. ASA [Concomitant]
     Dosage: 80 MG, QD
  5. VIT D [Concomitant]
     Dosage: UNK, UNK, QD
  6. BISOPROLOL [Concomitant]
     Dosage: 5 MG, QD
  7. FUROSEMIDE [Concomitant]
     Dosage: 20 MG, QD
  8. ATACAND [Concomitant]
     Dosage: 16 MG, QD
  9. LIPIDIL [Concomitant]
     Dosage: UNK
  10. ZYLOPRIM [Concomitant]
     Dosage: UNK
  11. DETROL [Concomitant]
     Dosage: UNK

REACTIONS (4)
  - Cystitis [Unknown]
  - Hernia [Unknown]
  - Condition aggravated [Not Recovered/Not Resolved]
  - Pruritus [Unknown]
